FAERS Safety Report 7122411-6 (Version None)
Quarter: 2010Q4

REPORT INFORMATION
  Report Type: 
  Country: None (occurrence: None)
  Receive Date: 20101122
  Receipt Date: 20101122
  Transmission Date: 20110411
  Serious: Yes (Hospitalization)
  Sender: FDA-Public Use
  Company Number: None

PATIENT
  Age: 83 Year
  Sex: Male

DRUGS (2)
  1. RITUXIMAB [Suspect]
     Indication: NEOPLASM MALIGNANT
     Dosage: 562.5 MG ONCE IV
     Route: 042
     Dates: start: 20101109, end: 20101109
  2. DOXORUBICIN HCL [Suspect]
     Indication: NEOPLASM MALIGNANT
     Dosage: 75 MG ONCE IV
     Route: 042
     Dates: start: 20101109, end: 20101109

REACTIONS (2)
  - ASTHENIA [None]
  - PANCYTOPENIA [None]
